FAERS Safety Report 17502733 (Version 1)
Quarter: 2020Q1

REPORT INFORMATION
  Report Type: Report from Study
  Country: US (occurrence: US)
  Receive Date: 20200305
  Receipt Date: 20200305
  Transmission Date: 20200409
  Serious: Yes (Other)
  Sender: FDA-Public Use
  Company Number: US-JNJFOC-20190936208

PATIENT
  Age: 63 Year
  Sex: Female
  Weight: 65.83 kg

DRUGS (1)
  1. STELARA [Suspect]
     Active Substance: USTEKINUMAB
     Indication: CROHN^S DISEASE
     Dosage: 90 MG/ML
     Route: 058
     Dates: start: 20190814, end: 20191014

REACTIONS (9)
  - Umbilical hernia [Not Recovered/Not Resolved]
  - Urinary tract infection [Recovered/Resolved]
  - Blister [Recovered/Resolved]
  - Inguinal hernia [Not Recovered/Not Resolved]
  - Eye infection [Recovered/Resolved]
  - Abnormal weight gain [Not Recovered/Not Resolved]
  - Vulvovaginal mycotic infection [Recovered/Resolved]
  - Pruritus [Recovered/Resolved]
  - Arthralgia [Recovered/Resolved]

NARRATIVE: CASE EVENT DATE: 201908
